FAERS Safety Report 5396022-7 (Version None)
Quarter: 2007Q3

REPORT INFORMATION
  Report Type: 
  Country: None (occurrence: None)
  Receive Date: 20070724
  Receipt Date: 20070712
  Transmission Date: 20080115
  Serious: Yes (Other)
  Sender: FDA-Public Use
  Company Number: US-PFIZER INC-2007058404

PATIENT
  Sex: Female
  Weight: 93.4 kg

DRUGS (6)
  1. LYRICA [Suspect]
     Indication: FIBROMYALGIA
  2. AMBIEN [Concomitant]
  3. AVIL [Concomitant]
  4. LISINOPRIL [Concomitant]
  5. HYDROCODONE BITARTRATE [Concomitant]
  6. RANITIDINE [Concomitant]

REACTIONS (1)
  - EPISTAXIS [None]
